FAERS Safety Report 7884314-9 (Version None)
Quarter: 2011Q4

REPORT INFORMATION
  Report Type: 
  Country: None (occurrence: None)
  Receive Date: 20111102
  Receipt Date: 20111028
  Transmission Date: 20120403
  Serious: Yes (Hospitalization)
  Sender: FDA-Public Use
  Company Number: JP-ROCHE-742548

PATIENT
  Sex: Male

DRUGS (30)
  1. FLUOROURACIL [Suspect]
     Route: 040
     Dates: start: 20090928, end: 20100118
  2. TOPOTECAN [Concomitant]
     Indication: RECTAL CANCER METASTATIC
     Dosage: NOTE: DOSAGE IS UNCERTAIN. DRUG:IRINOTECAN HYDROCHLORIDE(IRINOTECAN HYDROCHLORIDE)
     Route: 041
     Dates: start: 20081029, end: 20090522
  3. ASPIRIN [Concomitant]
     Indication: THROMBOSIS PROPHYLAXIS
     Route: 048
     Dates: start: 20100726, end: 20101012
  4. FLUOROURACIL [Suspect]
     Route: 041
     Dates: start: 20090928, end: 20100101
  5. OXALIPLATIN [Suspect]
     Indication: RECTAL CANCER METASTATIC
     Route: 041
     Dates: start: 20090928, end: 20100118
  6. LEVOLEUCOVORIN CALCIUM [Concomitant]
     Dosage: DOSAGE IS UNCERTAIN
     Route: 041
     Dates: start: 20090928, end: 20100118
  7. LEVOLEUCOVORIN CALCIUM [Concomitant]
     Dosage: DOSAGE IS UNCERTAIN
     Route: 041
     Dates: start: 20100614, end: 20100922
  8. GRANISETRON HCL [Concomitant]
     Indication: PROPHYLAXIS
     Dosage: ROUTE: INTRAVENOUS (NOT OTHERWISE SPECIFIED).
     Route: 042
     Dates: start: 20081029, end: 20100922
  9. FLUOROURACIL [Suspect]
     Route: 040
     Dates: start: 20100101, end: 20100922
  10. OXALIPLATIN [Suspect]
     Route: 041
     Dates: start: 20100426, end: 20100524
  11. EBRANTIL [Concomitant]
     Indication: HYPERTENSION
     Route: 048
     Dates: start: 20100712, end: 20101012
  12. AVASTIN [Suspect]
     Indication: RECTAL CANCER METASTATIC
     Route: 041
     Dates: start: 20081210, end: 20090522
  13. FLUOROURACIL [Suspect]
     Indication: RECTAL CANCER METASTATIC
     Dosage: NOTE: DOSAGE IS UNCERTAIN.
     Route: 040
     Dates: start: 20081029, end: 20090612
  14. FLUOROURACIL [Suspect]
     Route: 040
     Dates: start: 20100201, end: 20100412
  15. DECADRON [Concomitant]
     Route: 048
     Dates: start: 20081030, end: 20100924
  16. CALSLOT [Concomitant]
     Indication: HYPERTENSION
     Route: 048
  17. FLUOROURACIL [Suspect]
     Dosage: NOTE: DOSAGE IS UNCERTAIN.
     Route: 041
     Dates: start: 20081029, end: 20090601
  18. FLUOROURACIL [Suspect]
     Route: 041
     Dates: start: 20100101, end: 20100924
  19. LEVOLEUCOVORIN CALCIUM [Concomitant]
     Indication: RECTAL CANCER METASTATIC
     Route: 041
     Dates: start: 20081029, end: 20090612
  20. DECADRON [Concomitant]
     Indication: PROPHYLAXIS
     Route: 042
     Dates: start: 20081029, end: 20100922
  21. DIOVAN [Concomitant]
     Indication: HYPERTENSION
     Route: 048
  22. AVASTIN [Suspect]
     Route: 041
     Dates: start: 20100426, end: 20100524
  23. FLUOROURACIL [Suspect]
     Route: 041
     Dates: start: 20100201, end: 20100401
  24. TOPOTECAN [Concomitant]
     Route: 041
     Dates: start: 20100614, end: 20100922
  25. LEVOLEUCOVORIN CALCIUM [Concomitant]
     Route: 041
     Dates: start: 20100201, end: 20100412
  26. AVASTIN [Suspect]
     Route: 041
     Dates: start: 20100614, end: 20100922
  27. FLUOROURACIL [Suspect]
     Route: 041
     Dates: start: 20100426, end: 20100501
  28. LEVOLEUCOVORIN CALCIUM [Concomitant]
     Route: 041
     Dates: start: 20100426, end: 20100524
  29. LEVOLEUCOVORIN CALCIUM [Concomitant]
     Route: 041
     Dates: start: 20100101, end: 20100922
  30. FLUOROURACIL [Suspect]
     Route: 040
     Dates: start: 20100426, end: 20100524

REACTIONS (2)
  - ANAPHYLACTOID REACTION [None]
  - CONGESTIVE CARDIOMYOPATHY [None]
